FAERS Safety Report 14298941 (Version 1)
Quarter: 2017Q4

REPORT INFORMATION
  Report Type: Spontaneous
  Country: US (occurrence: US)
  Receive Date: 20171218
  Receipt Date: 20171218
  Transmission Date: 20180321
  Serious: Yes (Death)
  Sender: FDA-Public Use
  Company Number: PHHY2017US182830

PATIENT
  Age: 55 Year
  Sex: Male
  Weight: 96 kg

DRUGS (3)
  1. METHOTREXATE. [Suspect]
     Active Substance: METHOTREXATE
     Indication: B-CELL LYMPHOMA
     Dosage: 8 G/M2, UNK (TOTAL 17 G)
     Route: 042
  2. LEUCOVORIN. [Concomitant]
     Active Substance: LEUCOVORIN
     Dosage: 100 MG, Q6H
     Route: 065
  3. LEUCOVORIN. [Concomitant]
     Active Substance: LEUCOVORIN
     Indication: B-CELL LYMPHOMA
     Dosage: 25 MG, Q6H
     Route: 065

REACTIONS (6)
  - Pancytopenia [Fatal]
  - Renal tubular necrosis [Fatal]
  - Bone marrow failure [Fatal]
  - Acute kidney injury [Fatal]
  - Septic shock [Fatal]
  - Hypotension [Fatal]
